FAERS Safety Report 9375844 (Version 1)
Quarter: 2013Q2

REPORT INFORMATION
  Report Type: Spontaneous
  Country: US (occurrence: US)
  Receive Date: 20130628
  Receipt Date: 20130628
  Transmission Date: 20140414
  Serious: Yes (Other)
  Sender: FDA-Public Use
  Company Number: US-PAR PHARMACEUTICAL, INC-2013SCPR005998

PATIENT
  Sex: 0

DRUGS (1)
  1. METOCLOPRAMIDE [Suspect]
     Indication: PRODUCT USED FOR UNKNOWN INDICATION
     Dosage: 10 MG, TID
     Route: 048

REACTIONS (5)
  - Carpal tunnel syndrome [Unknown]
  - Myofascitis [Unknown]
  - Extrapyramidal disorder [Unknown]
  - Anxiety [Unknown]
  - Condition aggravated [Unknown]
